FAERS Safety Report 10516901 (Version 1)
Quarter: 2014Q4

REPORT INFORMATION
  Report Type: Spontaneous
  Country: US (occurrence: None)
  Receive Date: 20141003
  Receipt Date: 20141003
  Transmission Date: 20150528
  Serious: Yes (Other)
  Sender: FDA-Public Use
  Company Number: 1384595

PATIENT
  Age: 57 Year
  Sex: Female

DRUGS (11)
  1. LISINOPRIL. [Concomitant]
     Active Substance: LISINOPRIL
  2. CLONAZEPAM. [Concomitant]
     Active Substance: CLONAZEPAM
  3. REMERON(MIRTAZAPINE) [Concomitant]
  4. BENADRYL(UNITED STATES)(DIPHENHYDRAMINE HYDROCHLORIDE)(CREAM) [Concomitant]
  5. MELATONIN [Concomitant]
     Active Substance: MELATONIN
  6. RIBAVIRIN(RIBAVIRIN) [Suspect]
     Active Substance: RIBAVIRIN
     Indication: CHRONIC HEPATITIS C
     Dosage: AM (2 IN 1 D), ORAL
     Route: 048
     Dates: start: 20140328, end: 20140516
  7. ATENOLOL. [Concomitant]
     Active Substance: ATENOLOL
  8. PEGASYS [Suspect]
     Active Substance: PEGINTERFERON ALFA-2A
     Indication: CHRONIC HEPATITIS C
     Route: 058
     Dates: start: 20140328, end: 20140519
  9. PRILOSECT(OMEPRAZOLE) [Concomitant]
  10. ZETIA(EZETIMIBE) [Concomitant]
  11. ASPIRIN. [Concomitant]
     Active Substance: ASPIRIN

REACTIONS (8)
  - Blood pressure increased [None]
  - Depression [None]
  - Haemoglobin decreased [None]
  - Injection site reaction [None]
  - Nausea [None]
  - Asthenia [None]
  - Insomnia [None]
  - Fatigue [None]
